FAERS Safety Report 17814155 (Version 2)
Quarter: 2020Q2

REPORT INFORMATION
  Report Type: Spontaneous
  Country: IT (occurrence: IT)
  Receive Date: 20200521
  Receipt Date: 20200619
  Transmission Date: 20200714
  Serious: Yes (Hospitalization, Other)
  Sender: FDA-Public Use
  Company Number: IT-009507513-2005ITA003285

PATIENT
  Age: 44 Year
  Sex: Male

DRUGS (2)
  1. ZINFORO [Suspect]
     Active Substance: CEFTAROLINE FOSAMIL
     Indication: PSEUDOMONAS INFECTION
     Dosage: 600 MILLIGRAM, BID
     Route: 042
     Dates: start: 20200509, end: 20200513
  2. ZERBAXA [Suspect]
     Active Substance: CEFTOLOZANE SULFATE\TAZOBACTAM SODIUM
     Indication: PSEUDOMONAS INFECTION
     Dosage: 1 GRAM, TID
     Route: 042
     Dates: start: 20200509, end: 20200513

REACTIONS (1)
  - Thrombocytopenia [Unknown]

NARRATIVE: CASE EVENT DATE: 20200510
